FAERS Safety Report 5482558-7 (Version None)
Quarter: 2007Q4

REPORT INFORMATION
  Report Type: 
  Country: None (occurrence: None)
  Receive Date: 20071011
  Receipt Date: 20070706
  Transmission Date: 20080405
  Serious: No
  Sender: FDA-Public Use
  Company Number: A0662208A

PATIENT
  Age: 65 Year
  Sex: Female

DRUGS (17)
  1. TYKERB [Suspect]
     Indication: BREAST CANCER
     Dosage: 625MG TWICE PER DAY
     Route: 048
     Dates: start: 20070701
  2. XELODA [Suspect]
     Dosage: 500MG FIVE TIMES PER DAY
     Dates: start: 20070701
  3. ZANAFLEX [Concomitant]
  4. PREVACID [Concomitant]
  5. PHENERGAN HCL [Concomitant]
  6. LORAZEPAM [Concomitant]
  7. BUTALBITAL [Concomitant]
  8. ZOLOFT [Concomitant]
  9. BELLERGAL-S [Concomitant]
  10. FUROSEMIDE [Concomitant]
  11. POTASSIUM CHLORIDE [Concomitant]
  12. SPIRONOLACTONE [Concomitant]
  13. OXYCONTIN [Concomitant]
  14. FENTANYL [Concomitant]
  15. DIGOXIN [Concomitant]
  16. COREG [Concomitant]
  17. NEURONTIN [Concomitant]

REACTIONS (3)
  - CHEST PAIN [None]
  - DIARRHOEA [None]
  - DRUG ADMINISTRATION ERROR [None]
